FAERS Safety Report 8982470 (Version 1)
Quarter: 2012Q4

REPORT INFORMATION
  Report Type: 
  Country: US (occurrence: US)
  Receive Date: 20121212
  Receipt Date: 20121212
  Transmission Date: 20130627
  Serious: Yes (Death, Other)
  Sender: FDA-Public Use
  Company Number: US-ASTELLAS-1120947

PATIENT
  Sex: Female

DRUGS (3)
  1. TARCEVA [Suspect]
     Indication: MALIGNANT RESPIRATORY TRACT NEOPLASM
     Route: 048
     Dates: start: 20050722
  2. TARCEVA [Suspect]
     Route: 048
     Dates: start: 20050808, end: 20050822
  3. TARCEVA [Suspect]
     Route: 065

REACTIONS (5)
  - Lung neoplasm malignant [Fatal]
  - Pneumonia aspiration [Fatal]
  - Toxicity to various agents [Unknown]
  - Diarrhoea [Recovered/Resolved]
  - Stomatitis [Unknown]
